FAERS Safety Report 8508940-9 (Version None)
Quarter: 2012Q3

REPORT INFORMATION
  Report Type: 
  Country: None (occurrence: None)
  Receive Date: 20120713
  Receipt Date: 20120710
  Transmission Date: 20120928
  Serious: Yes (Death, Other)
  Sender: FDA-Public Use
  Company Number: DE-PFIZER INC-2012166400

PATIENT
  Sex: Male

DRUGS (2)
  1. METHADON HCL TAB [Suspect]
  2. LYRICA [Suspect]

REACTIONS (3)
  - OVERDOSE [None]
  - DEPENDENCE [None]
  - DEATH [None]
